FAERS Safety Report 5313839-5 (Version None)
Quarter: 2007Q2

REPORT INFORMATION
  Report Type: 
  Country: None (occurrence: None)
  Receive Date: 20070501
  Receipt Date: 20070423
  Transmission Date: 20071010
  Serious: Yes (Other)
  Sender: FDA-Public Use
  Company Number: 2007R031272

PATIENT
  Age: 33 Year
  Sex: Female

DRUGS (2)
  1. AROPAX [Suspect]
     Indication: DEPRESSION
     Route: 065
     Dates: start: 20010101
  2. EFFEXOR [Suspect]
     Indication: DEPRESSION
     Route: 065

REACTIONS (8)
  - AGITATION [None]
  - AKATHISIA [None]
  - ANXIETY [None]
  - CONDITION AGGRAVATED [None]
  - PHYSICAL ASSAULT [None]
  - SUICIDAL IDEATION [None]
  - SUICIDE ATTEMPT [None]
  - THINKING ABNORMAL [None]
